FAERS Safety Report 7732755-2 (Version None)
Quarter: 2011Q3

REPORT INFORMATION
  Report Type: 
  Country: None (occurrence: None)
  Receive Date: 20110901
  Receipt Date: 20101027
  Transmission Date: 20111222
  Serious: Yes (Other)
  Sender: FDA-Public Use
  Company Number: GAM-316-10-US

PATIENT

DRUGS (2)
  1. OCTAGAM [Suspect]
  2. OCTAGAM [Suspect]
     Indication: PRODUCT USED FOR UNKNOWN INDICATION
     Dates: start: 20100601

REACTIONS (1)
  - CEREBROVASCULAR ACCIDENT [None]
